FAERS Safety Report 15794578 (Version 2)
Quarter: 2019Q1

REPORT INFORMATION
  Report Type: Spontaneous
  Country: BN (occurrence: BN)
  Receive Date: 20190107
  Receipt Date: 20190110
  Transmission Date: 20190417
  Serious: Yes (Other)
  Sender: FDA-Public Use
  Company Number: BN-B.I. PHARMACEUTICALS,INC./RIDGEFIELD-2019-BI-000643

PATIENT
  Age: 69 Year
  Sex: Female
  Weight: 81.9 kg

DRUGS (15)
  1. WARFARIN SODIUM. [Concomitant]
     Active Substance: WARFARIN SODIUM
     Dosage: 2MG AT 18 HOURS ON THURS, FRI, SAT, SUN
     Route: 048
     Dates: start: 20181122, end: 20181206
  2. WARFARIN SODIUM. [Concomitant]
     Active Substance: WARFARIN SODIUM
     Indication: EMBOLISM VENOUS
     Dosage: 2.5MG 18:00 HOURS ON THURSDAY TO SATURDAY
     Route: 048
     Dates: start: 20181122, end: 20181206
  3. WARFARIN [Concomitant]
     Active Substance: WARFARIN
     Indication: PRODUCT USED FOR UNKNOWN INDICATION
     Route: 048
     Dates: start: 20181106, end: 20181109
  4. WARFARIN [Concomitant]
     Active Substance: WARFARIN
     Route: 065
     Dates: start: 20181109, end: 20181112
  5. CELECOXIB. [Concomitant]
     Active Substance: CELECOXIB
     Indication: ARTHRITIS
     Dosage: 200MG AT 06:00 AND 18.00 HOURS
     Route: 048
     Dates: start: 20181030, end: 20181113
  6. PRADAXA [Suspect]
     Active Substance: DABIGATRAN ETEXILATE MESYLATE
     Indication: THROMBOSIS PROPHYLAXIS
     Dosage: 220MG AT 06:00 HOURS
     Route: 048
     Dates: start: 20181030, end: 20181122
  7. TRAMADOL. [Concomitant]
     Active Substance: TRAMADOL
     Indication: PHYSIOTHERAPY
     Dosage: 50MG AT 06:00 AND 18:00 HOURS
     Route: 048
     Dates: start: 20181201
  8. ORPHENADRINE W/PARACETAMOL [Concomitant]
     Indication: ARTHRITIS
     Dosage: 2 TABLETS AT 06:00, 14:00 AND 22:00 HOURS
     Route: 048
     Dates: start: 20181030, end: 20181113
  9. TRAMADOL. [Concomitant]
     Active Substance: TRAMADOL
     Indication: ARTHRITIS
     Dosage: 50MG AT 06:00, 14:00 AND 22:00 HOURS
     Route: 048
     Dates: start: 20181030, end: 20181113
  10. WARFARIN SODIUM. [Concomitant]
     Active Substance: WARFARIN SODIUM
     Indication: ANTICOAGULANT THERAPY
     Dosage: SUNDAY TO TUESDAY, SATURDAY AT 18:00 HOURS- 2MG?WEDNESDAY TO FRIDAY AT 18:00 HOURS- 3MG
     Route: 048
     Dates: start: 20181205, end: 20190102
  11. FONDAPARINUX [Concomitant]
     Active Substance: FONDAPARINUX
     Indication: EMBOLISM VENOUS
     Dosage: 7.5MG AT 6 HOURS; STRENGTH: 7.5MG/0.6ML
     Route: 058
     Dates: start: 20181110, end: 20181113
  12. CELECOXIB. [Concomitant]
     Active Substance: CELECOXIB
     Indication: PHYSIOTHERAPY
  13. WARFARIN SODIUM. [Concomitant]
     Active Substance: WARFARIN SODIUM
     Dosage: 3MG AT 18:00 HOURS
     Route: 048
     Dates: start: 20181119, end: 20181122
  14. ORPHENADRINE W/PARACETAMOL [Concomitant]
     Indication: PHYSIOTHERAPY
  15. WARFARIN SODIUM. [Concomitant]
     Active Substance: WARFARIN SODIUM
     Dosage: MONDAY TO THURSDAY  AT 18:00 HOURS - 2MG?FRIDAY, SATURDAY AND SUNDAY AT 18:00 HOURS- 3 MG
     Route: 048
     Dates: start: 20190102

REACTIONS (1)
  - Deep vein thrombosis [Unknown]
